FAERS Safety Report 6311565-7 (Version None)
Quarter: 2009Q3

REPORT INFORMATION
  Report Type: 
  Country: None (occurrence: None)
  Receive Date: 20090817
  Receipt Date: 20090804
  Transmission Date: 20100115
  Serious: Yes (Hospitalization, Other)
  Sender: FDA-Public Use
  Company Number: US-BAYER-200912695BCC

PATIENT
  Age: 58 Year
  Sex: Male
  Weight: 91 kg

DRUGS (4)
  1. ASPIRIN [Suspect]
     Indication: MIGRAINE
     Dosage: CONSUMER TOOK ONE OR TWO
     Route: 048
     Dates: start: 19780101, end: 19830101
  2. WALGREENS LOW DOSE ASPIRIN [Concomitant]
     Route: 048
  3. WALGREENS FORM OF ONE DAILY FOR MEN 50 PLUS ADVANCED [Concomitant]
     Route: 065
  4. ASMANEX TWISTHALER [Concomitant]
     Route: 045

REACTIONS (2)
  - GASTRIC CANCER [None]
  - POST PROCEDURAL INFECTION [None]
